FAERS Safety Report 9725690 (Version 1)
Quarter: 2013Q4

REPORT INFORMATION
  Report Type: Spontaneous
  Country: US (occurrence: None)
  Receive Date: 20131202
  Receipt Date: 20131202
  Transmission Date: 20140711
  Serious: Yes (Disabling, Other)
  Sender: FDA-Public Use
  Company Number: None

PATIENT
  Age: 65 Year
  Sex: Male
  Weight: 91.17 kg

DRUGS (5)
  1. LINAGLIPTIN [Suspect]
     Indication: DIABETES MELLITUS
     Dosage: 5 MG, 1 PILL ONCE DAILY, ORAL
     Route: 048
     Dates: start: 20131028, end: 20131113
  2. ASPIRIN [Concomitant]
  3. VINEGAR (CRAMPS) [Concomitant]
  4. GLUCOSAMINE [Concomitant]
  5. VITAMINS [Concomitant]

REACTIONS (10)
  - Headache [None]
  - Somnolence [None]
  - Asthenia [None]
  - Dizziness [None]
  - Irritability [None]
  - Hyperhidrosis [None]
  - Feeling jittery [None]
  - Dry mouth [None]
  - Pollakiuria [None]
  - Back pain [None]
